FAERS Safety Report 6306817-0 (Version None)
Quarter: 2009Q3

REPORT INFORMATION
  Report Type: 
  Country: None (occurrence: None)
  Receive Date: 20090811
  Receipt Date: 20090811
  Transmission Date: 20100115
  Serious: Yes (Disabling)
  Sender: FDA-Public Use
  Company Number: None

PATIENT
  Age: 48 Year
  Sex: Male
  Weight: 70.3075 kg

DRUGS (1)
  1. VARENICLINE ONE MG PFIZER [Suspect]
     Indication: SMOKING CESSATION THERAPY
     Dosage: TWO MG TWICE DAILY PO
     Route: 048

REACTIONS (7)
  - ANXIETY [None]
  - IMPAIRED WORK ABILITY [None]
  - INSOMNIA [None]
  - LIBIDO DECREASED [None]
  - NIGHTMARE [None]
  - PANIC ATTACK [None]
  - WEIGHT DECREASED [None]
